FAERS Safety Report 8897471 (Version 1)
Quarter: 2012Q4

REPORT INFORMATION
  Report Type: 
  Country: US (occurrence: US)
  Receive Date: 20121108
  Receipt Date: 20121108
  Transmission Date: 20130627
  Serious: No
  Sender: FDA-Public Use
  Company Number: US-AMGEN-USASP2012028586

PATIENT
  Age: 54 Year
  Sex: Male

DRUGS (9)
  1. ENBREL [Suspect]
     Indication: PRODUCT USED FOR UNKNOWN INDICATION
     Dosage: 50 mg, qwk
     Route: 058
  2. KLONOPIN [Concomitant]
     Dosage: 0.5 mg, UNK
  3. ELOCON [Concomitant]
     Dosage: 0.1 %, UNK
  4. ROBAXIN [Concomitant]
     Dosage: 500 mg, UNK
  5. FLONASE [Concomitant]
     Dosage: 0.05 %, UNK
  6. PROPRANOLOL [Concomitant]
     Dosage: 20 mg, UNK
  7. ZANAFLEX [Concomitant]
     Dosage: 2 mg, UNK
  8. FRESHKOTE [Concomitant]
     Dosage: UNK
  9. LORTAB                             /00607101/ [Concomitant]

REACTIONS (1)
  - Therapeutic response decreased [Unknown]
